FAERS Safety Report 15433949 (Version 1)
Quarter: 2018Q3

REPORT INFORMATION
  Report Type: Spontaneous
  Country: US (occurrence: US)
  Receive Date: 20180921
  Receipt Date: 20180921
  Transmission Date: 20181010
  Serious: No
  Sender: FDA-Public Use
  Company Number: None

PATIENT
  Age: 52 Year
  Sex: Female

DRUGS (1)
  1. FORTEO [Suspect]
     Active Substance: TERIPARATIDE
     Indication: OSTEOPOROSIS
     Route: 058
     Dates: start: 20180824, end: 20180901

REACTIONS (5)
  - Feeding disorder [None]
  - Alopecia [None]
  - Therapy cessation [None]
  - Nausea [None]
  - Mobility decreased [None]

NARRATIVE: CASE EVENT DATE: 20180920
